FAERS Safety Report 5283172-9 (Version None)
Quarter: 2007Q2

REPORT INFORMATION
  Report Type: 
  Country: None (occurrence: None)
  Receive Date: 20070402
  Receipt Date: 20070328
  Transmission Date: 20071010
  Serious: Yes (Other)
  Sender: FDA-Public Use
  Company Number: CA-GLAXOSMITHKLINE-A0630817A

PATIENT
  Age: 66 Year
  Sex: Female

DRUGS (11)
  1. AVANDIA [Suspect]
     Dosage: 8MG PER DAY
     Dates: start: 20020103
  2. ANTI-CHOLESTEROL MEDICATION [Suspect]
  3. PANTALOC [Concomitant]
     Indication: HYPERTENSION
  4. CARBOCAL [Concomitant]
     Indication: HYPERTENSION
  5. GLYBURIDE [Concomitant]
  6. FOSAMAX [Concomitant]
     Indication: OSTEOPOROSIS
  7. METFORMIN [Concomitant]
  8. ASACOL [Concomitant]
  9. PINDOLOL [Concomitant]
  10. ZESTRIL [Concomitant]
  11. ACETAMINOPHEN [Concomitant]

REACTIONS (4)
  - BLOOD CREATINE PHOSPHOKINASE INCREASED [None]
  - MYALGIA [None]
  - MYOSITIS [None]
  - NEOPLASM MALIGNANT [None]
